FAERS Safety Report 4915906-4 (Version None)
Quarter: 2006Q1

REPORT INFORMATION
  Report Type: 
  Country: None (occurrence: None)
  Receive Date: 20060214
  Receipt Date: 20060201
  Transmission Date: 20060701
  Serious: Yes (Hospitalization, Other)
  Sender: FDA-Public Use
  Company Number: 2005172064

PATIENT
  Sex: Female
  Weight: 82.5547 kg

DRUGS (8)
  1. DILANTIN KAPSEAL [Suspect]
     Indication: CONVULSION PROPHYLAXIS
     Dosage: 300 MG (100 MG, 3 IN 1 D), ORAL
     Route: 048
     Dates: start: 19820101
  2. NORVASC [Suspect]
     Indication: HYPERTENSION
  3. GEODON [Suspect]
     Indication: ILL-DEFINED DISORDER
     Dosage: 40 MG
  4. SEROQUEL [Suspect]
     Indication: ILL-DEFINED DISORDER
  5. ANTIHYPERTENSIVES (ANTIHYPERTENSIVES) [Suspect]
     Indication: HYPERTENSION
  6. ANASTROZOLE (ANASTROZOLE) [Concomitant]
  7. HYDROCHLOROTHIAZIDE [Concomitant]
  8. FEOSOL (FERROUS SULFATE) [Concomitant]

REACTIONS (12)
  - ABNORMAL BEHAVIOUR [None]
  - BODY HEIGHT DECREASED [None]
  - BREAST CANCER FEMALE [None]
  - BURNING SENSATION [None]
  - CONVULSION [None]
  - DEATH OF FRIEND [None]
  - DYSKINESIA [None]
  - FATIGUE [None]
  - INSOMNIA [None]
  - NEOPLASM [None]
  - PAIN IN EXTREMITY [None]
  - TREATMENT NONCOMPLIANCE [None]
